FAERS Safety Report 24422608 (Version 1)
Quarter: 2024Q4

REPORT INFORMATION
  Report Type: Spontaneous
  Country: US (occurrence: US)
  Receive Date: 20241010
  Receipt Date: 20241010
  Transmission Date: 20250114
  Serious: Yes (Hospitalization, Other)
  Sender: JOHNSON AND JOHNSON
  Company Number: US-JNJFOC-20241013395

PATIENT
  Age: 5 Decade
  Sex: Female
  Weight: 68.9 kg

DRUGS (24)
  1. XARELTO [Suspect]
     Active Substance: RIVAROXABAN
     Indication: Product used for unknown indication
     Route: 048
     Dates: end: 2023
  2. REMODULIN [Suspect]
     Active Substance: TREPROSTINIL
     Indication: Pulmonary arterial hypertension
     Route: 058
  3. REMODULIN [Suspect]
     Active Substance: TREPROSTINIL
     Dosage: (PHARMACY # 2 PRE-FILLED WITH 3 ML PER CASSETTE AT THE PUMP RATE OF 35 MCL PER HOUR)
     Route: 058
  4. REMODULIN [Suspect]
     Active Substance: TREPROSTINIL
     Dosage: (PHARMACY PREFILL 3 # 3 ML/CASSETTE, RATE OF 42 MCL/HOUR)
     Route: 058
  5. REMODULIN [Suspect]
     Active Substance: TREPROSTINIL
     Route: 058
     Dates: start: 20230615
  6. HEPARIN SODIUM [Suspect]
     Active Substance: HEPARIN SODIUM
     Indication: Pulmonary oedema
     Route: 065
     Dates: start: 202406
  7. MELATONIN [Concomitant]
     Active Substance: MELATONIN
  8. PLAQUENIL [Concomitant]
     Active Substance: HYDROXYCHLOROQUINE SULFATE
  9. AMBIEN [Concomitant]
     Active Substance: ZOLPIDEM TARTRATE
  10. IMODIUM [Concomitant]
     Active Substance: LOPERAMIDE HYDROCHLORIDE
  11. PREDNISONE [Concomitant]
     Active Substance: PREDNISONE
  12. POTASSIUM CHLORIDE [Concomitant]
     Active Substance: POTASSIUM CHLORIDE
  13. METOLAZONE [Concomitant]
     Active Substance: METOLAZONE
  14. RITUXAN [Concomitant]
     Active Substance: RITUXIMAB
  15. LASIX [Concomitant]
     Active Substance: FUROSEMIDE
  16. IMITREX [Concomitant]
     Active Substance: SUMATRIPTAN SUCCINATE
  17. XANAX [Concomitant]
     Active Substance: ALPRAZOLAM
  18. HYDROXYZINE HYDROCHLORIDE [Concomitant]
     Active Substance: HYDROXYZINE HYDROCHLORIDE
  19. BIOTIN [Concomitant]
     Active Substance: BIOTIN
  20. SPIRONOLACTONE [Concomitant]
     Active Substance: SPIRONOLACTONE
  21. DIGOXIN [Concomitant]
     Active Substance: DIGOXIN
  22. BENLYSTA [Concomitant]
     Active Substance: BELIMUMAB
  23. PRILOSEC OTC [Concomitant]
     Active Substance: OMEPRAZOLE MAGNESIUM
  24. SODIUM CHLORIDE [Concomitant]
     Active Substance: SODIUM CHLORIDE

REACTIONS (12)
  - Pulmonary arterial hypertension [Unknown]
  - Sepsis [Unknown]
  - Hypervolaemia [Unknown]
  - Varicose vein [Unknown]
  - Thrombosis [Unknown]
  - Pulmonary oedema [Unknown]
  - Infusion site swelling [Unknown]
  - Dyspnoea [Unknown]
  - Infusion site haemorrhage [Not Recovered/Not Resolved]
  - Infusion site pain [Unknown]
  - Headache [Unknown]
  - Device infusion issue [Unknown]

NARRATIVE: CASE EVENT DATE: 20230101
